FAERS Safety Report 5789426-1 (Version None)
Quarter: 2008Q2

REPORT INFORMATION
  Report Type: 
  Country: None (occurrence: None)
  Receive Date: 20080623
  Receipt Date: 20080617
  Transmission Date: 20081010
  Serious: Yes (Life-Threatening)
  Sender: FDA-Public Use
  Company Number: 6041108

PATIENT
  Age: 71 Year
  Sex: Male

DRUGS (11)
  1. CONCOR COR 2,5 MG(2.5 MG)(BISOPROLOL FUMARATE) [Suspect]
     Indication: DRUG USE FOR UNKNOWN INDICATION
  2. BELOC ZOK MITE (METOPROLOL SUCCINATE) [Concomitant]
  3. L-THYROXIN (125 MICROGRAM) (LEVOTHYROXINE) [Concomitant]
  4. OPIRAMOL (50 MG) (OPIRAMOL) [Concomitant]
  5. TAFIL (0.5 MG) (ALPRAZOLAM) [Concomitant]
  6. NEOGAM FORTE (200 MG) (SULPIRIDE) [Concomitant]
  7. PLAVIX (75 MG) (CLOPIDOGREL) [Concomitant]
  8. BIPRETERAX (INDAPAMIDE, PERINDOPRIL ERBUMINE) [Concomitant]
  9. OMEPRAZOL (20 MG) (OMEPRAZOLE) [Concomitant]
  10. BROMAZANIL 6 (BROMAZEPAM) [Concomitant]
  11. VOLTAREN (RETARD (DICOFENAC) [Concomitant]

REACTIONS (14)
  - AGGRESSION [None]
  - ANXIETY [None]
  - BLOOD PRESSURE DECREASED [None]
  - DEPRESSION SUICIDAL [None]
  - DIZZINESS [None]
  - FATIGUE [None]
  - GAIT DISTURBANCE [None]
  - HEART RATE DECREASED [None]
  - MEMORY IMPAIRMENT [None]
  - MUSCLE SPASMS [None]
  - PERSONALITY CHANGE [None]
  - REFUSAL OF TREATMENT BY PATIENT [None]
  - RESTLESSNESS [None]
  - VERTIGO [None]
